FAERS Safety Report 4625696-0 (Version None)
Quarter: 2005Q2

REPORT INFORMATION
  Report Type: 
  Country: None (occurrence: None)
  Receive Date: 20050404
  Receipt Date: 20050323
  Transmission Date: 20051028
  Serious: Yes (Death, Hospitalization, Disabling)
  Sender: FDA-Public Use
  Company Number: JP-JNJFOC-20040700723

PATIENT
  Sex: Female
  Weight: 60 kg

DRUGS (10)
  1. REMICADE [Suspect]
     Route: 042
  2. REMICADE [Suspect]
     Route: 042
  3. REMICADE [Suspect]
     Route: 042
  4. REMICADE [Suspect]
     Route: 042
  5. REMICADE [Suspect]
     Indication: RHEUMATOID ARTHRITIS
     Route: 042
  6. RHEUMATREX [Concomitant]
     Indication: RHEUMATOID ARTHRITIS
     Route: 049
  7. AZULFIDINE [Concomitant]
     Indication: RHEUMATOID ARTHRITIS
     Dosage: 2 DOSES DAILY
     Route: 049
  8. LOXONIN [Concomitant]
     Indication: RHEUMATOID ARTHRITIS
     Dosage: 2 DOSES DAILY
     Route: 049
  9. BONARON [Concomitant]
     Dosage: 1 DOSE, FREQUENCY UNKNOWN
     Route: 049
  10. MUCOSTA [Concomitant]
     Dosage: 2 DOSES, FREQUENCY UNKNOWN
     Route: 049
     Dates: start: 20040105, end: 20040618

REACTIONS (2)
  - CARDIAC ARREST [None]
  - ENCEPHALITIS HERPES [None]
